FAERS Safety Report 4747058-8 (Version None)
Quarter: 2005Q3

REPORT INFORMATION
  Report Type: 
  Country: None (occurrence: None)
  Receive Date: 20050817
  Receipt Date: 20050804
  Transmission Date: 20060218
  Serious: Yes (Other)
  Sender: FDA-Public Use
  Company Number: US-ABBOTT-05P-163-0307511-00

PATIENT
  Sex: Male
  Weight: 104 kg

DRUGS (4)
  1. DEPAKOTE [Suspect]
     Indication: AFFECTIVE DISORDER
     Route: 048
     Dates: start: 20030101, end: 20050714
  2. DEPAKOTE [Suspect]
     Route: 048
     Dates: start: 19990101, end: 20020101
  3. DEPAKOTE [Suspect]
     Route: 048
     Dates: start: 20020101, end: 20030101
  4. ZIPRASIDONE HYDROCHLORIDE [Concomitant]
     Indication: AFFECTIVE DISORDER
     Route: 048
     Dates: start: 19990101

REACTIONS (2)
  - HEADACHE [None]
  - PITUITARY TUMOUR [None]
